FAERS Safety Report 18876524 (Version 2)
Quarter: 2021Q2

REPORT INFORMATION
  Report Type: Spontaneous
  Country: US (occurrence: US)
  Receive Date: 20210211
  Receipt Date: 20210426
  Transmission Date: 20210717
  Serious: No
  Sender: FDA-Public Use
  Company Number: US-SA-2021SA038767

PATIENT
  Age: 45 Year
  Sex: Female

DRUGS (13)
  1. VITAMIN C [Concomitant]
     Active Substance: ASCORBIC ACID
  2. MILK THISTLE [SILYBUM MARIANUM] [Concomitant]
     Active Substance: DIETARY SUPPLEMENT\HERBALS\MILK THISTLE
  3. ZINC. [Concomitant]
     Active Substance: ZINC
  4. DUPIXENT [Suspect]
     Active Substance: DUPILUMAB
     Dosage: 300 MG, QOW
     Route: 058
     Dates: start: 202104
  5. BIOTIN [Concomitant]
     Active Substance: BIOTIN
  6. VITAMIN B12 [Concomitant]
     Active Substance: CYANOCOBALAMIN
  7. DUPIXENT [Suspect]
     Active Substance: DUPILUMAB
     Dosage: 300 MG, QOW
     Route: 058
     Dates: start: 202101
  8. VITAMIN B1 [Concomitant]
     Active Substance: THIAMINE HYDROCHLORIDE
  9. VITAMIN A NOS [Concomitant]
     Active Substance: VITAMIN A
  10. AMLODIPINE BESYLATE. [Concomitant]
     Active Substance: AMLODIPINE BESYLATE
  11. DUPIXENT [Suspect]
     Active Substance: DUPILUMAB
     Indication: DERMATITIS ATOPIC
     Dosage: UNK
     Route: 058
     Dates: start: 202011
  12. VITAMIN D2 [Concomitant]
     Active Substance: ERGOCALCIFEROL
  13. IRON [Concomitant]
     Active Substance: IRON
     Dosage: STRENGTH: 160(50) MG

REACTIONS (3)
  - Pruritus [Unknown]
  - Dermatitis atopic [Unknown]
  - Dry eye [Unknown]

NARRATIVE: CASE EVENT DATE: 20201229
